FAERS Safety Report 12545538 (Version 1)
Quarter: 2016Q3

REPORT INFORMATION
  Report Type: Spontaneous
  Country: US (occurrence: US)
  Receive Date: 20160711
  Receipt Date: 20160711
  Transmission Date: 20161109
  Serious: Yes (Other)
  Sender: FDA-Public Use
  Company Number: US-JNJFOC-20160625111

PATIENT

DRUGS (4)
  1. COLOSTRUM [Concomitant]
     Route: 065
  2. HUMIRA [Suspect]
     Active Substance: ADALIMUMAB
     Indication: CROHN^S DISEASE
     Route: 058
     Dates: start: 2006
  3. ENTYVIO [Suspect]
     Active Substance: VEDOLIZUMAB
     Indication: CROHN^S DISEASE
     Route: 065
  4. STELARA [Suspect]
     Active Substance: USTEKINUMAB
     Indication: CROHN^S DISEASE
     Route: 058
     Dates: start: 2006

REACTIONS (5)
  - Product use issue [Unknown]
  - Gastrointestinal stenosis [Unknown]
  - Intestinal resection [Unknown]
  - Gastrointestinal fistula [Unknown]
  - Off label use [Unknown]

NARRATIVE: CASE EVENT DATE: 2006
